FAERS Safety Report 4734766-8 (Version None)
Quarter: 2005Q3

REPORT INFORMATION
  Report Type: 
  Country: None (occurrence: None)
  Receive Date: 20050804
  Receipt Date: 20050726
  Transmission Date: 20060218
  Serious: Yes (Hospitalization)
  Sender: FDA-Public Use
  Company Number: FR-GLAXOSMITHKLINE-B0388688A

PATIENT
  Age: 82 Year
  Sex: Female

DRUGS (7)
  1. TIMENTIN [Suspect]
     Indication: SUPERINFECTION LUNG
     Route: 042
     Dates: start: 20050510, end: 20050616
  2. SERETIDE [Suspect]
     Indication: SUPERINFECTION LUNG
     Route: 065
     Dates: start: 20050510, end: 20050526
  3. AMIODARONE [Concomitant]
     Route: 065
  4. DILTIAZEM HCL [Concomitant]
     Route: 065
  5. PLAVIX [Concomitant]
     Route: 065
  6. BACTRIM [Concomitant]
     Indication: SUPERINFECTION LUNG
     Route: 065
  7. COTAREG [Concomitant]
     Indication: SUPERINFECTION LUNG
     Route: 065
     Dates: end: 20050526

REACTIONS (5)
  - BILIARY TRACT OPERATION [None]
  - CHOLELITHIASIS [None]
  - HEPATITIS CHOLESTATIC [None]
  - JAUNDICE [None]
  - PRURITUS [None]
